FAERS Safety Report 10950812 (Version 2)
Quarter: 2016Q2

REPORT INFORMATION
  Report Type: Spontaneous
  Country: US (occurrence: US)
  Receive Date: 20150324
  Receipt Date: 20160613
  Transmission Date: 20160815
  Serious: Yes (Life-Threatening, Hospitalization, Congenital Anomaly, Other)
  Sender: FDA-Public Use
  Company Number: US-ELI_LILLY_AND_COMPANY-US201503005822

PATIENT
  Age: 0 Day

DRUGS (7)
  1. PRENATAL VITAMINS                  /02014401/ [Concomitant]
     Active Substance: VITAMINS
     Indication: PREGNANCY
     Dosage: UNK, UNKNOWN
     Route: 064
  2. AZITHROMYCIN ANHYDROUS. [Concomitant]
     Active Substance: AZITHROMYCIN ANHYDROUS
     Indication: PREMATURE RUPTURE OF MEMBRANES
     Dosage: UNK, UNKNOWN
     Route: 064
  3. AMPICILLIN [Concomitant]
     Active Substance: AMPICILLIN
     Indication: PREMATURE RUPTURE OF MEMBRANES
     Dosage: UNK, UNKNOWN
     Route: 064
  4. MAGNESIUM                          /07323201/ [Concomitant]
     Indication: PREMATURE LABOUR
     Dosage: UNK, UNKNOWN
     Route: 064
  5. PROZAC [Suspect]
     Active Substance: FLUOXETINE HYDROCHLORIDE
     Indication: ANXIETY
     Dosage: 20 MG, QD
     Route: 064
     Dates: start: 20050623
  6. BETAMETHASONE. [Concomitant]
     Active Substance: BETAMETHASONE
     Indication: IMMATURE RESPIRATORY SYSTEM
     Dosage: UNK, UNKNOWN
     Route: 064
  7. PROZAC [Suspect]
     Active Substance: FLUOXETINE HYDROCHLORIDE
     Indication: DEPRESSION

REACTIONS (6)
  - Cardiac valve disease [Unknown]
  - Foetal exposure during pregnancy [Unknown]
  - Persistent foetal circulation [Unknown]
  - Premature baby [Unknown]
  - Asthma [Unknown]
  - Funisitis [Unknown]

NARRATIVE: CASE EVENT DATE: 20061105
